FAERS Safety Report 9928940 (Version 3)
Quarter: 2014Q2

REPORT INFORMATION
  Report Type: Spontaneous
  Country: GB (occurrence: None)
  Receive Date: 20140221
  Receipt Date: 20140416
  Transmission Date: 20141212
  Serious: Yes (Death)
  Sender: FDA-Public Use
  Company Number: GB-MDCO-14-00045

PATIENT
  Age: 41 Year
  Sex: Female
  Weight: 41 kg

DRUGS (4)
  1. ANGIOX [Suspect]
     Indication: PERCUTANEOUS CORONARY INTERVENTION
     Dosage: INTRAVENOUS (NOT OTHERWISE SPECIFIED)
     Route: 042
     Dates: start: 20131224, end: 20131224
  2. OCTAPLEX [Suspect]
     Indication: CEREBRAL HAEMORRHAGE
     Dosage: 500 IU, INTRAVENOUS (NOT OTHERWISE SPECIFIED)?
     Route: 042
     Dates: start: 20131224, end: 20131224
  3. GENTAMICIN (GENTAMICIN) (GENTAMICIN) [Concomitant]
  4. BLOOD TRANSFUSION (BLOOD, WHOLE ) (BLOOD, WHOLE) [Concomitant]

REACTIONS (5)
  - Cerebrovascular accident [None]
  - Cerebral haemorrhage [None]
  - Cerebral thrombosis [None]
  - Medication error [None]
  - Contraindication to medical treatment [None]
